FAERS Safety Report 6027882-4 (Version None)
Quarter: 2009Q1

REPORT INFORMATION
  Report Type: 
  Country: None (occurrence: None)
  Receive Date: 20090105
  Receipt Date: 20081222
  Transmission Date: 20090719
  Serious: Yes (Hospitalization)
  Sender: FDA-Public Use
  Company Number: JP-PFIZER INC-2008079221

PATIENT

DRUGS (2)
  1. LIPITOR [Suspect]
     Indication: HYPERLIPIDAEMIA
     Dosage: 10 MG, 1X/DAY
     Route: 048
     Dates: start: 20080502, end: 20080909
  2. BLOPRESS [Concomitant]
     Dosage: 4 MG, 1X/DAY
     Dates: end: 20080909

REACTIONS (1)
  - HYPEREOSINOPHILIC SYNDROME [None]
